FAERS Safety Report 11270054 (Version 1)
Quarter: 2015Q3

REPORT INFORMATION
  Report Type: Spontaneous
  Country: US (occurrence: US)
  Receive Date: 20150714
  Receipt Date: 20150714
  Transmission Date: 20151125
  Serious: No
  Sender: FDA-Public Use
  Company Number: US-PFIZER INC-2015229812

PATIENT
  Age: 31 Year
  Sex: Female
  Weight: 61.68 kg

DRUGS (29)
  1. NEXIUM [Concomitant]
     Active Substance: ESOMEPRAZOLE MAGNESIUM
     Dosage: 40 MG, 1X/DAY, (TAKES IT IN THE MORNING)
     Route: 048
  2. DEPO-PROVERA [Concomitant]
     Active Substance: MEDROXYPROGESTERONE ACETATE
     Indication: CONTRACEPTION
     Dosage: UNK, EVERY 3 MONTHS
     Route: 030
  3. RITALIN [Concomitant]
     Active Substance: METHYLPHENIDATE HYDROCHLORIDE
     Indication: ATTENTION DEFICIT/HYPERACTIVITY DISORDER
     Dosage: 20 MG, 3X/DAY
     Route: 048
  4. EFFEXOR [Concomitant]
     Active Substance: VENLAFAXINE HYDROCHLORIDE
     Indication: ANTIDEPRESSANT THERAPY
     Dosage: 150 MG, 2X/DAY
  5. SALINE [Concomitant]
     Active Substance: SODIUM CHLORIDE
     Indication: DEHYDRATION
  6. FLORINEF ACETATE [Concomitant]
     Active Substance: FLUDROCORTISONE ACETATE
     Dosage: 0.1 MG, 2X/DAY
  7. BACLOFEN. [Concomitant]
     Active Substance: BACLOFEN
     Indication: MUSCLE SPASMS
     Dosage: 10 MG, 1X/DAY, (AT BED TIME)
  8. FLONASE [Concomitant]
     Active Substance: FLUTICASONE PROPIONATE
     Indication: HYPERSENSITIVITY
     Dosage: 100 ?G, UNK
     Route: 045
  9. PROMETHAZINE [Concomitant]
     Active Substance: PROMETHAZINE\PROMETHAZINE HYDROCHLORIDE
     Indication: VOMITING
  10. AMITRIPTYLINE [Concomitant]
     Active Substance: AMITRIPTYLINE
     Indication: SLEEP DISORDER
     Dosage: 25 MG, 1X/DAY, (AT BED TIME)
     Route: 048
  11. AMITRIPTYLINE [Concomitant]
     Active Substance: AMITRIPTYLINE
     Indication: ANTIDEPRESSANT THERAPY
  12. PROCHLORPERAZINE. [Concomitant]
     Active Substance: PROCHLORPERAZINE
     Indication: NAUSEA
     Dosage: 5 MG, (UP TO 3 TIMES A DAY)
     Route: 048
  13. CLARITIN [Concomitant]
     Active Substance: LORATADINE
     Dosage: 20 MG, UNK
  14. XANAX [Concomitant]
     Active Substance: ALPRAZOLAM
     Indication: ANXIETY
     Dosage: 1 MG, 2X/DAY
  15. BOTOX [Concomitant]
     Active Substance: ONABOTULINUMTOXINA
     Indication: MIGRAINE
     Dosage: UNK UNK, EVERY 3 MONTHS
  16. CLONAZEPAM. [Concomitant]
     Active Substance: CLONAZEPAM
     Indication: ANXIETY
     Dosage: 1 MG, 3X/DAY
  17. PROMETHAZINE [Concomitant]
     Active Substance: PROMETHAZINE\PROMETHAZINE HYDROCHLORIDE
     Indication: NAUSEA
     Dosage: 25 MG, AS NEEDED
     Route: 054
  18. LINZESS [Concomitant]
     Active Substance: LINACLOTIDE
     Indication: IRRITABLE BOWEL SYNDROME
     Dosage: 145 ?G, 1X/DAY
     Route: 048
  19. FENTANYL. [Concomitant]
     Active Substance: FENTANYL
     Indication: PAIN
     Dosage: 75 MCG AN HOUR
  20. DOXYCYCLINE. [Concomitant]
     Active Substance: DOXYCYCLINE
     Indication: ACNE
     Dosage: 100 MG, 1X/DAY, (AT BED TIME)
  21. VALTREX [Concomitant]
     Active Substance: VALACYCLOVIR HYDROCHLORIDE
     Dosage: 500 MG, 1X/DAY, (IN MORNING)
     Route: 048
  22. MESTINON [Concomitant]
     Active Substance: PYRIDOSTIGMINE BROMIDE
     Dosage: 60 MG 2 TABLETS IN MORNINGS, 1 TABLET AT LUNCH AND 2 TABLETS IN EVENING
     Route: 048
  23. SALINE [Concomitant]
     Active Substance: SODIUM CHLORIDE
     Indication: BLOOD PRESSURE ABNORMAL
     Dosage: 2000 ML, ON EVERY MONDAY, WEDNESDAY AND FRIDAY
  24. HEPARIN [Concomitant]
     Active Substance: HEPARIN SODIUM
     Indication: ANTICOAGULANT THERAPY
     Dosage: 500 IU, UNK
  25. LYRICA [Suspect]
     Active Substance: PREGABALIN
     Indication: FIBROMYALGIA
     Dosage: 150 MG, 2X/DAY
     Route: 048
     Dates: start: 20150204, end: 20150615
  26. PROCHLORPERAZINE. [Concomitant]
     Active Substance: PROCHLORPERAZINE
     Indication: VOMITING
  27. SUMAVEL DOSEPRO [Concomitant]
     Active Substance: SUMATRIPTAN SUCCINATE
     Indication: MIGRAINE
     Dosage: 6 MG/0.5 MILLILITRE AS NEEDED 1 SHOT IN EVERY 24 HOURS)
     Route: 058
  28. DEPO-PROVERA [Concomitant]
     Active Substance: MEDROXYPROGESTERONE ACETATE
     Indication: ENDOMETRIOSIS
  29. RITALIN [Concomitant]
     Active Substance: METHYLPHENIDATE HYDROCHLORIDE
     Indication: HYPOTENSION

REACTIONS (2)
  - Autonomic nervous system imbalance [Unknown]
  - Small fibre neuropathy [Unknown]
